FAERS Safety Report 6371988-7 (Version None)
Quarter: 2009Q3

REPORT INFORMATION
  Report Type: 
  Country: None (occurrence: None)
  Receive Date: 20090917
  Receipt Date: 20090904
  Transmission Date: 20100115
  Serious: Yes (Life-Threatening)
  Sender: FDA-Public Use
  Company Number: ADR18092009

PATIENT
  Age: 84 Year
  Sex: Female

DRUGS (11)
  1. CITALOPRAM HYDROBROMIDE [Suspect]
     Indication: DEPRESSED MOOD
     Dosage: 10 MG, ORAL USE
     Route: 048
     Dates: start: 20070425, end: 20090427
  2. ASPIRIN [Concomitant]
  3. CONOTRANE [Concomitant]
  4. DIAZEPAM [Concomitant]
  5. DIGOXIN [Concomitant]
  6. FUROSEMIDE [Concomitant]
  7. GLICLAZIDE [Concomitant]
  8. SODIUM CHLORIDE [Concomitant]
  9. SOTALOL [Concomitant]
  10. SPIRONOLACTONE [Concomitant]
  11. TAMOXIFEN CITRATE [Concomitant]

REACTIONS (1)
  - HYPOGLYCAEMIA [None]
